FAERS Safety Report 19041657 (Version 4)
Quarter: 2021Q2

REPORT INFORMATION
  Report Type: Report from Study
  Country: None (occurrence: RO)
  Receive Date: 20210323
  Receipt Date: 20210427
  Transmission Date: 20210717
  Serious: Yes (Hospitalization, Disabling)
  Sender: FDA-Public Use
  Company Number: RO-ABBVIE-21K-135-3825925-00

PATIENT
  Age: 72 Year
  Sex: Male

DRUGS (2)
  1. DUODOPA [Suspect]
     Active Substance: CARBIDOPA\LEVODOPA
  2. DUODOPA [Suspect]
     Active Substance: CARBIDOPA\LEVODOPA
     Indication: PARKINSON^S DISEASE
     Dosage: DM=8.50 DC=3.50 ED=1.80 NRED=4; DMN=0.00 DCN=0.00 EDN=0.00 NREDN=0
     Route: 050
     Dates: start: 20201007

REACTIONS (12)
  - COVID-19 [Recovering/Resolving]
  - Cerebral atrophy [Recovering/Resolving]
  - Lymphadenitis [Recovering/Resolving]
  - Pleural effusion [Recovering/Resolving]
  - Mobility decreased [Recovering/Resolving]
  - Adrenal disorder [Recovering/Resolving]
  - Oxygen saturation abnormal [Recovering/Resolving]
  - Somnolence [Recovering/Resolving]
  - Dizziness [Recovering/Resolving]
  - General physical health deterioration [Recovering/Resolving]
  - Decreased appetite [Recovering/Resolving]
  - Myalgia [Recovering/Resolving]

NARRATIVE: CASE EVENT DATE: 20210317
